FAERS Safety Report 19303784 (Version 5)
Quarter: 2022Q3

REPORT INFORMATION
  Report Type: Other
  Country: JP (occurrence: JP)
  Receive Date: 20210525
  Receipt Date: 20220913
  Transmission Date: 20221027
  Serious: Yes (Death, Other)
  Sender: FDA-Public Use
  Company Number: JP-CHUGAI-2021000932AA

PATIENT
  Age: 75 Year
  Sex: Male
  Weight: 82.7 kg

DRUGS (22)
  1. ATEZOLIZUMAB [Suspect]
     Active Substance: ATEZOLIZUMAB
     Indication: Hepatocellular carcinoma
     Route: 041
     Dates: start: 20210106, end: 20210106
  2. ATEZOLIZUMAB [Suspect]
     Active Substance: ATEZOLIZUMAB
     Dosage: 1200 MILLIGRAM, ONCE/3WEEKS
     Route: 041
     Dates: start: 20210201, end: 20210405
  3. BEVACIZUMAB [Suspect]
     Active Substance: BEVACIZUMAB
     Indication: Hepatocellular carcinoma
     Route: 041
     Dates: start: 20210106, end: 20210106
  4. BEVACIZUMAB [Suspect]
     Active Substance: BEVACIZUMAB
     Route: 041
     Dates: start: 20210201, end: 20210405
  5. SOLU-MEDROL [Suspect]
     Active Substance: METHYLPREDNISOLONE SODIUM SUCCINATE
     Indication: Interstitial lung disease
     Dosage: 1000 MILLIGRAM
     Route: 065
     Dates: start: 20210430, end: 20210502
  6. PREDNISOLONE [Suspect]
     Active Substance: PREDNISOLONE
     Indication: Interstitial lung disease
     Dosage: 60 MILLIGRAM, BID
     Route: 048
     Dates: start: 20210503, end: 20210516
  7. PREDNISOLONE [Suspect]
     Active Substance: PREDNISOLONE
     Dosage: 50 MILLIGRAM, BID
     Route: 048
     Dates: start: 20210517, end: 20210520
  8. MEDROL [Suspect]
     Active Substance: METHYLPREDNISOLONE
     Indication: Interstitial lung disease
     Dosage: 40 MILLIGRAM, BID
     Route: 048
     Dates: start: 20210521, end: 20210602
  9. MEDROL [Suspect]
     Active Substance: METHYLPREDNISOLONE
     Dosage: 24 MILLIGRAM, BID
     Route: 048
     Dates: start: 20210603, end: 20210609
  10. PREDONINE [Suspect]
     Active Substance: PREDNISOLONE
     Indication: Interstitial lung disease
     Dosage: 25 MILLIGRAM, QD
     Route: 048
     Dates: start: 20210610, end: 20210617
  11. PREDONINE [Suspect]
     Active Substance: PREDNISOLONE
     Dosage: 20 MILLIGRAM, QD
     Route: 048
     Dates: start: 20210618, end: 20210703
  12. VONOPRAZAN FUMARATE [Concomitant]
     Active Substance: VONOPRAZAN FUMARATE
     Dosage: UNK, QD
     Route: 048
     Dates: start: 20190528, end: 20210703
  13. AMBROXOL HYDROCHLORIDE [Concomitant]
     Active Substance: AMBROXOL HYDROCHLORIDE
     Indication: Cough
     Dosage: UNK UNK, QD
     Route: 048
     Dates: start: 20201102, end: 20210703
  14. ISOLEUCINE\LEUCINE\VALINE [Concomitant]
     Active Substance: ISOLEUCINE\LEUCINE\VALINE
     Indication: Hepatic failure
     Dosage: UNK
     Route: 048
     Dates: start: 20190426, end: 20210703
  15. UNSPECIFIED INGREDIENT [Concomitant]
     Active Substance: UNSPECIFIED INGREDIENT
     Indication: Hepatic failure
     Dosage: UNK, TID
     Route: 048
     Dates: start: 20201202, end: 20210703
  16. URSODIOL [Concomitant]
     Active Substance: URSODIOL
     Indication: Liver disorder
     Dosage: 200 MILLIGRAM, TID
     Route: 048
     Dates: start: 20190628, end: 20210703
  17. SHAKUYAKUKANZOTO [Concomitant]
     Active Substance: HERBALS
     Indication: Muscle spasms
     Dosage: UNK, PRN
     Route: 048
     Dates: start: 20190426, end: 20210703
  18. LEVOTHYROXINE SODIUM [Concomitant]
     Active Substance: LEVOTHYROXINE SODIUM
     Indication: Hypothyroidism
     Dosage: UNK UNK, QD
     Route: 048
     Dates: start: 20210222, end: 20210703
  19. VALSARTAN [Concomitant]
     Active Substance: VALSARTAN
     Indication: Hypertension
     Dosage: UNK UNK, QD
     Route: 048
     Dates: start: 20210402, end: 20210703
  20. FUROSEMIDE [Concomitant]
     Active Substance: FUROSEMIDE
     Indication: Hypertension
     Dosage: UNK UNK, QD
     Route: 048
     Dates: start: 20210107, end: 20210703
  21. HUSCODE [Concomitant]
     Active Substance: CHLORPHENIRAMINE MALEATE\DIHYDROCODEINE PHOSPHATE\METHYLEPHEDRINE HYDROCHLORIDE, DL-
     Indication: Cough
     Dosage: UNK, TID
     Route: 048
     Dates: start: 20210416, end: 20210703
  22. ELIQUIS [Concomitant]
     Active Substance: APIXABAN
     Indication: Deep vein thrombosis
     Dosage: 20 MILLIGRAM, BID
     Route: 048
     Dates: start: 20210625, end: 20210703

REACTIONS (17)
  - Chronic kidney disease [Fatal]
  - Hepatorenal syndrome [Fatal]
  - Cirrhosis alcoholic [Fatal]
  - Multiple organ dysfunction syndrome [Fatal]
  - Deep vein thrombosis [Fatal]
  - Cellulitis [Fatal]
  - Hypoxia [Recovered/Resolved]
  - Urinary tract infection [Unknown]
  - Pulmonary embolism [Unknown]
  - Ascites [Unknown]
  - Interstitial lung disease [Recovering/Resolving]
  - Hepatic function abnormal [Unknown]
  - Vascular access complication [Unknown]
  - Hypothyroidism [Recovered/Resolved]
  - Epistaxis [Recovered/Resolved]
  - Cough [Unknown]
  - Hypertension [Recovered/Resolved]

NARRATIVE: CASE EVENT DATE: 20210222
